FAERS Safety Report 9122530 (Version 1)
Quarter: 2013Q1

REPORT INFORMATION
  Report Type: Spontaneous
  Country: US (occurrence: None)
  Receive Date: 20130130
  Receipt Date: 20130130
  Transmission Date: 20140127
  Serious: Yes (Death)
  Sender: FDA-Public Use
  Company Number: B0859541A

PATIENT
  Age: 64 Year
  Sex: Female

DRUGS (21)
  1. VENLAFAXINE HYDROCHLORIDE (FORMULATION UNKNOWN) (GENERIC) (VENLAFAXINE HYDROCHLORIDE) [Suspect]
     Route: 048
  2. LAMOTRIGINE (FORMULATION UNKNOWN) (GENERIC) (LAMOTRIGINE) [Suspect]
     Route: 048
  3. CITALOPRAM (FORMULATION UNKNOWN) (GENERIC) CITALOPRAM) [Suspect]
     Route: 048
  4. PANTOPRAZOLE (FORMULATION UNKNOWN) (GENERIC) (PANTOPRAZOLE) [Suspect]
     Route: 048
  5. DICLOFENAC (FORMULATION UNKNOWN) (GENE [Suspect]
     Route: 048
  6. CIPROFLOXACIN (FORMULATION UNKNOWN) (GENERIC) (CIPROFLOXACIN) [Suspect]
     Route: 048
  7. DESPIRAMINE (FORMULATION UNKNOW) (DESIPRAMINE [Suspect]
     Route: 048
  8. DILTIAZEM HYDROCHLORIDE (FORMULATION UNKNOWN) (DILTIAZEM HYDROCHLORIDE) [Suspect]
     Route: 048
  9. HYDROCHLOROTHIAZIDE (FORMULATION UNKNOWN) (HYROCHLOROTHIAZIDE) [Suspect]
     Route: 048
  10. ARMODAFINIL (FORMULATION UNKNOWN) (ARMODAFINIL) [Suspect]
     Route: 048
  11. POTASSIUM CHLORIDE (FORMUJLATION UNKNOWN) (POTASSIUM CHLORIDE) [Suspect]
     Route: 048
  12. TRIFLUOPERAZINE HC1 (FORMULATION UNKNOWN) (TRIFLUOPERAZINE HC1 ) [Suspect]
     Route: 048
  13. THYROID (FORMULATION UNKNOWN) (THYROID) [Suspect]
     Route: 048
  14. LANSOPRAZOLE (FORMULATION UNKNOWN) (LANSOPRAZOLE) [Suspect]
     Route: 048
  15. ROVUSTATIN (FORMULATION UNKNOWN) (GENERIC) [Suspect]
     Route: 048
  16. NAPROXEN (FORMULATION UNKNOWN) (NAPROXEN) [Suspect]
  17. NITROFURANTOIN (FORMULATION UNKNOWN) (NITRIFURANTOIN) [Suspect]
     Route: 048
  18. ACETAMINOPHEN\HYDROCODONE BITARTRATE [Suspect]
     Route: 048
  19. DEXTROPROP. + PARACETAMOL (FORMULATION UNKNOWN) (PROPOXYPHENE + ACETAMINOP) [Suspect]
     Route: 048
  20. SOLIFENACIN (FORMULATION UNKNOWN) (GENERIC) [Suspect]
  21. PROGESTERONE (FORMULATION UNKNOWN) (PROGESTERONE) [Suspect]
     Route: 048

REACTIONS (1)
  - Completed suicide [None]
